FAERS Safety Report 9645684 (Version 1)
Quarter: 2013Q4

REPORT INFORMATION
  Report Type: Spontaneous
  Country: US (occurrence: US)
  Receive Date: 20131025
  Receipt Date: 20131025
  Transmission Date: 20140711
  Serious: Yes (Other)
  Sender: FDA-Public Use
  Company Number: US-ACTAVIS-2013-18801

PATIENT
  Age: 51 Year
  Sex: Male

DRUGS (12)
  1. MORPHINE SULFATE (AELLC) [Suspect]
     Indication: PELVIC PAIN
     Dosage: 75 MG, Q8H
     Route: 048
     Dates: start: 20120719
  2. MORPHINE SULFATE (AELLC) [Interacting]
     Indication: BACK PAIN
  3. RIFAMPICIN (UNKNOWN) [Interacting]
     Indication: ENDOCARDITIS STAPHYLOCOCCAL
     Dosage: 600 MG, DAILY
     Route: 048
  4. OXACILLIN [Concomitant]
     Indication: ENDOCARDITIS STAPHYLOCOCCAL
     Dosage: 2 G, Q4H
     Route: 042
  5. NYSTATIN [Concomitant]
     Indication: PRODUCT USED FOR UNKNOWN INDICATION
     Dosage: 500000 UNITS/5ML, TID
     Route: 048
  6. GENTAMICIN [Concomitant]
     Indication: ENDOCARDITIS STAPHYLOCOCCAL
     Dosage: 100 MG, Q8H
     Route: 042
  7. WARFARIN [Concomitant]
     Indication: PRODUCT USED FOR UNKNOWN INDICATION
     Dosage: 7.5 MG, DAILY
     Route: 048
  8. LACTOBACILLUS [Concomitant]
     Indication: PRODUCT USED FOR UNKNOWN INDICATION
     Dosage: 1 TABLET, TWICE DAILY
     Route: 048
  9. OMEPRAZOLE [Concomitant]
     Indication: PRODUCT USED FOR UNKNOWN INDICATION
     Dosage: 40 MG, BID
     Route: 048
  10. ENOXAPARIN [Concomitant]
     Indication: PRODUCT USED FOR UNKNOWN INDICATION
     Dosage: 80 MG/0.8 ML, BID
     Route: 058
  11. CLONIDINE [Concomitant]
     Indication: WITHDRAWAL SYNDROME
     Dosage: 0.3 MG, DAILY (0.2 MG QAM AND 0.1 MG QPM)
     Route: 048
  12. CLONIDINE [Concomitant]
     Indication: BLOOD PRESSURE INCREASED

REACTIONS (2)
  - Analgesic drug level decreased [Unknown]
  - Drug interaction [Unknown]
